FAERS Safety Report 7227346-6 (Version None)
Quarter: 2011Q1

REPORT INFORMATION
  Report Type: 
  Country: None (occurrence: None)
  Receive Date: 20110114
  Receipt Date: 20110104
  Transmission Date: 20110831
  Serious: Yes (Hospitalization)
  Sender: FDA-Public Use
  Company Number: FR-MEDIMMUNE-MEDI-0012173

PATIENT
  Sex: Female

DRUGS (7)
  1. VITAMIN E [Concomitant]
  2. ASCORBIC ACID [Concomitant]
  3. SYNAGIS [Suspect]
     Indication: PROPHYLAXIS
     Route: 030
     Dates: start: 20101114, end: 20101114
  4. VALGANCICLOVIR HCL [Suspect]
     Route: 048
     Dates: start: 20101109, end: 20101203
  5. VITAMIN A [Concomitant]
  6. CIPROFLOXACIN HCL [Suspect]
     Route: 048
     Dates: start: 20101112, end: 20101210
  7. VITAMIN D [Concomitant]

REACTIONS (1)
  - NEUTROPENIA [None]
